FAERS Safety Report 21052609 (Version 1)
Quarter: 2022Q3

REPORT INFORMATION
  Report Type: Spontaneous
  Country: AE (occurrence: None)
  Receive Date: 20220707
  Receipt Date: 20220707
  Transmission Date: 20221026
  Serious: Yes (Other)
  Sender: FDA-Public Use
  Company Number: None

PATIENT
  Age: 35 Year
  Sex: Male

DRUGS (1)
  1. VEDOLIZUMAB [Suspect]
     Active Substance: VEDOLIZUMAB
     Indication: Colitis ulcerative

REACTIONS (11)
  - Dizziness [None]
  - Rash [None]
  - Pruritus [None]
  - Myalgia [None]
  - Pain [None]
  - Headache [None]
  - Abdominal pain [None]
  - Muscle spasms [None]
  - Fatigue [None]
  - Haemorrhage [None]
  - Hypoaesthesia oral [None]

NARRATIVE: CASE EVENT DATE: 20220610
